FAERS Safety Report 18798978 (Version 1)
Quarter: 2021Q1

REPORT INFORMATION
  Report Type: Spontaneous
  Country: US (occurrence: US)
  Receive Date: 20210127
  Receipt Date: 20210127
  Transmission Date: 20210419
  Serious: Yes (Death)
  Sender: FDA-Public Use
  Company Number: None

PATIENT

DRUGS (1)
  1. CLOPIDOGREL BISULFATE 75MG TABLETS [Suspect]
     Active Substance: CLOPIDOGREL BISULFATE

REACTIONS (1)
  - Death [None]
